FAERS Safety Report 24867507 (Version 1)
Quarter: 2025Q1

REPORT INFORMATION
  Report Type: Spontaneous
  Country: US (occurrence: None)
  Receive Date: 20250120
  Receipt Date: 20250120
  Transmission Date: 20250408
  Serious: No
  Sender: FDA-CTU
  Company Number: None

PATIENT
  Age: 42 Year
  Sex: Male

DRUGS (8)
  1. AMBRISENTAN [Suspect]
     Active Substance: AMBRISENTAN
     Indication: Pulmonary hypertension
     Dosage: FREQUENCY : DAILY;?
     Route: 048
     Dates: end: 20250117
  2. CVS Slow Release Iron Oral Tablet Extended Relea [Concomitant]
  3. METOPROLOL TARTRATE [Concomitant]
     Active Substance: METOPROLOL TARTRATE
  4. SM Potassium [Concomitant]
  5. TADALAFIL [Concomitant]
     Active Substance: TADALAFIL
  6. TGT ASPIRIN LOW DOSE [Concomitant]
  7. TORSEMIDE [Concomitant]
     Active Substance: TORSEMIDE
  8. UPTRAVI [Concomitant]
     Active Substance: SELEXIPAG

REACTIONS (1)
  - Death [None]

NARRATIVE: CASE EVENT DATE: 20250117
